FAERS Safety Report 12880367 (Version 1)
Quarter: 2016Q4

REPORT INFORMATION
  Report Type: Spontaneous
  Country: US (occurrence: US)
  Receive Date: 20161024
  Receipt Date: 20161024
  Transmission Date: 20170207
  Serious: Yes (Other)
  Sender: FDA-Public Use
  Company Number: None

PATIENT
  Age: 14 Year
  Sex: Female
  Weight: 54.9 kg

DRUGS (4)
  1. PANTAPRAZOLE [Concomitant]
     Active Substance: PANTOPRAZOLE SODIUM
  2. BALSALAZIDE [Concomitant]
     Active Substance: BALSALAZIDE
  3. MERCAPTOPURINE. [Suspect]
     Active Substance: MERCAPTOPURINE
     Indication: COLITIS ULCERATIVE
     Dosage: QUANTITY:1 TABLET(S); DAILY; ORAL?
     Route: 048
     Dates: start: 20160929, end: 20161022
  4. VSL#3 PROBIOTIC [Concomitant]

REACTIONS (2)
  - Haematemesis [None]
  - Abdominal pain upper [None]

NARRATIVE: CASE EVENT DATE: 20161019
